FAERS Safety Report 17308726 (Version 3)
Quarter: 2020Q1

REPORT INFORMATION
  Report Type: Spontaneous
  Country: ES (occurrence: ES)
  Receive Date: 20200123
  Receipt Date: 20200211
  Transmission Date: 20200409
  Serious: Yes (Other)
  Sender: FDA-Public Use
  Company Number: ES-BEH-2020111996

PATIENT
  Age: 1 Month
  Sex: Male
  Weight: 4.6 kg

DRUGS (1)
  1. PRIVIGEN [Suspect]
     Active Substance: HUMAN IMMUNOGLOBULIN G
     Indication: THROMBOCYTOPENIA
     Dosage: 5 GRAM (50 MILLILITER), QD
     Route: 042
     Dates: start: 20200110, end: 20200112

REACTIONS (4)
  - Burkholderia test positive [Recovered/Resolved]
  - Suspected product contamination [Recovered/Resolved]
  - Pyrexia [Recovered/Resolved]
  - Neutropenia [Unknown]

NARRATIVE: CASE EVENT DATE: 20200112
